FAERS Safety Report 9323733 (Version 1)
Quarter: 2013Q2

REPORT INFORMATION
  Report Type: Spontaneous
  Country: BR (occurrence: BR)
  Receive Date: 20130603
  Receipt Date: 20130603
  Transmission Date: 20140414
  Serious: Yes (Death, Other)
  Sender: FDA-Public Use
  Company Number: BR-ELI_LILLY_AND_COMPANY-BR201305008171

PATIENT
  Age: 92 Year
  Sex: Female

DRUGS (5)
  1. FORTEO [Suspect]
     Dosage: UNK, UNKNOWN
     Route: 065
  2. SERTRALINE [Concomitant]
     Indication: DEPRESSION
     Dosage: UNK, BID
     Route: 065
  3. TRAMAL [Concomitant]
     Indication: PAIN
     Dosage: UNK, UNKNOWN
     Route: 065
  4. DIPIRONA [Concomitant]
     Indication: PAIN
     Dosage: UNK, PRN
     Route: 065
  5. ALENDRONATE [Concomitant]
     Dosage: UNK, WEEKLY (1/W)
     Route: 065

REACTIONS (15)
  - Death [Fatal]
  - Mutism [Unknown]
  - Hallucination [Unknown]
  - Depression [Unknown]
  - Vomiting [Unknown]
  - Feeding disorder [Unknown]
  - Weight decreased [Unknown]
  - Aggression [Unknown]
  - Feeling abnormal [Unknown]
  - Pain [Unknown]
  - Sleep disorder [Unknown]
  - Dyspnoea [Unknown]
  - Sputum retention [Unknown]
  - Productive cough [Unknown]
  - Retching [Unknown]
